FAERS Safety Report 6039941-0 (Version None)
Quarter: 2009Q1

REPORT INFORMATION
  Report Type: 
  Country: None (occurrence: None)
  Receive Date: 20090116
  Receipt Date: 20080514
  Transmission Date: 20090719
  Serious: Yes (Hospitalization)
  Sender: FDA-Public Use
  Company Number: US-BRISTOL-MYERS SQUIBB COMPANY-13928098

PATIENT
  Age: 53 Year
  Sex: Female

DRUGS (11)
  1. ABILIFY [Suspect]
     Indication: SCHIZOAFFECTIVE DISORDER
     Route: 048
     Dates: start: 20070527, end: 20070919
  2. LORATADINE [Concomitant]
     Dosage: 1 DOSAGE FORM = 10 (UNITS NOT SPECIFIED).
  3. FOSAMAX [Concomitant]
     Dosage: 1 DOSAGE FORM = 70 (UNITS NOT SPECIFIED).
  4. RISPERDAL CONSTA [Concomitant]
     Route: 030
  5. ADVAIR DISKUS 100/50 [Concomitant]
     Dosage: 1 DOSAGE FORM = 250/50, 1 PUFF, BID.
  6. CALCIUM [Concomitant]
     Dosage: 1 DOSAGE FORM = 1000 (UNITS NOT MENTIONED).
  7. VITAMIN D [Concomitant]
  8. SPIRIVA [Concomitant]
  9. IBUPROFEN [Concomitant]
     Dosage: 1 DOSAGE FORM = 800 (UNITS NOT MENTIONED).
  10. VISTARIL [Concomitant]
  11. ALBUTEROL [Concomitant]

REACTIONS (1)
  - CARDIOMYOPATHY [None]
